FAERS Safety Report 5745063-6 (Version None)
Quarter: 2008Q2

REPORT INFORMATION
  Report Type: 
  Country: None (occurrence: None)
  Receive Date: 20080521
  Receipt Date: 20080516
  Transmission Date: 20081010
  Serious: Yes (Hospitalization)
  Sender: FDA-Public Use
  Company Number: US-BRISTOL-MYERS SQUIBB COMPANY-14189872

PATIENT
  Age: 60 Year
  Sex: Female
  Weight: 109 kg

DRUGS (7)
  1. DASATINIB [Suspect]
     Indication: SARCOMA
     Dosage: 20MG LA118119; 9-2008 50MG 5M04240; 9-2009;  RESTARTED AT REDUCED DOSE 50MG POBID
     Route: 048
     Dates: start: 20080425, end: 20080509
  2. BETIMOL [Concomitant]
  3. CARTIA XT [Concomitant]
  4. CLONAZEPAM [Concomitant]
  5. HYZAAR [Concomitant]
  6. LANTUS [Concomitant]
  7. MILK OF MAGNESIA [Concomitant]

REACTIONS (4)
  - DEHYDRATION [None]
  - NAUSEA [None]
  - PLEURAL EFFUSION [None]
  - VOMITING [None]
